FAERS Safety Report 8914923 (Version 1)
Quarter: 2012Q4

REPORT INFORMATION
  Report Type: Report from Study
  Country: DE (occurrence: DE)
  Receive Date: 20121116
  Receipt Date: 20121116
  Transmission Date: 20130627
  Serious: Yes (Hospitalization)
  Sender: FDA-Public Use
  Company Number: DE-VERTEX PHARMACEUTICAL INC.-000000000000001210

PATIENT
  Age: 48 Year
  Sex: Male
  Weight: 63 kg

DRUGS (5)
  1. VX-950 (TELAPREVIR) [Suspect]
     Indication: CHRONIC HEPATITIS C
     Dosage: Dosage Form: Tablet
     Route: 048
     Dates: start: 20120316, end: 20120607
  2. COPEGUS [Suspect]
     Indication: CHRONIC HEPATITIS C
     Dosage: Dosage Form: Unspecified
     Route: 048
     Dates: start: 20120316
  3. PEGASYS [Suspect]
     Indication: CHRONIC HEPATITIS C
     Dosage: Dosage Form: Injection
     Route: 058
     Dates: start: 20120316
  4. DERMATOP [Concomitant]
     Dosage: Dosage Form: Cream
     Route: 061
     Dates: start: 20120522
  5. CETIRIZIN [Concomitant]
     Dosage: UNK, prn
     Route: 048
     Dates: start: 20120522

REACTIONS (1)
  - Dermatitis atopic [Not Recovered/Not Resolved]
